FAERS Safety Report 8237803-1 (Version None)
Quarter: 2012Q1

REPORT INFORMATION
  Report Type: 
  Country: None (occurrence: None)
  Receive Date: 20120326
  Receipt Date: 20120316
  Transmission Date: 20120608
  Serious: Yes (Hospitalization, Disabling)
  Sender: FDA-Public Use
  Company Number: 2011SP040941

PATIENT
  Age: 22 Year
  Sex: Female
  Weight: 61.2356 kg

DRUGS (1)
  1. NUVARING [Suspect]
     Indication: CONTRACEPTION
     Dates: start: 20090101, end: 20090905

REACTIONS (9)
  - PULMONARY EMBOLISM [None]
  - BACK PAIN [None]
  - HAEMORRHAGIC ANAEMIA [None]
  - HAEMATOMA [None]
  - FACTOR V DEFICIENCY [None]
  - CHLAMYDIA TEST POSITIVE [None]
  - HYPERCOAGULATION [None]
  - INTERNATIONAL NORMALISED RATIO DECREASED [None]
  - DEEP VEIN THROMBOSIS [None]
